FAERS Safety Report 23680836 (Version 1)
Quarter: 2024Q1

REPORT INFORMATION
  Report Type: Other
  Country: DE (occurrence: None)
  Receive Date: 20240328
  Receipt Date: 20240328
  Transmission Date: 20240410
  Serious: No
  Sender: FDA-Public Use
  Company Number: DE-ROCHE-3532793

PATIENT
  Age: 39 Year
  Sex: Female

DRUGS (1)
  1. OCREVUS [Suspect]
     Active Substance: OCRELIZUMAB
     Indication: Relapsing-remitting multiple sclerosis
     Route: 042
     Dates: start: 20190401

REACTIONS (6)
  - Pain in extremity [Recovered/Resolved]
  - Aphasia [Recovered/Resolved]
  - Feeling drunk [Recovered/Resolved]
  - Ear infection fungal [Recovered/Resolved]
  - Ear pain [Recovering/Resolving]
  - Portal shunt procedure [Recovered/Resolved]

NARRATIVE: CASE EVENT DATE: 20190401
